FAERS Safety Report 6465529-3 (Version None)
Quarter: 2009Q4

REPORT INFORMATION
  Report Type: 
  Country: None (occurrence: None)
  Receive Date: 20091124
  Receipt Date: 20091111
  Transmission Date: 20100525
  Serious: Yes (Hospitalization)
  Sender: FDA-Public Use
  Company Number: 2009AL007320

PATIENT
  Age: 88 Year
  Sex: Female

DRUGS (6)
  1. RAMIPRIL [Suspect]
     Indication: HYPERTONIA
     Dosage: 5 MG;QD;PO
     Route: 048
     Dates: end: 20090220
  2. ACETYLSALICYLIC ACID [Concomitant]
  3. OMEPRAZOLE [Concomitant]
  4. DELIX PLUS [Concomitant]
  5. METOPROLOL [Concomitant]
  6. SIMVASTATIN [Concomitant]

REACTIONS (6)
  - ANGIOEDEMA [None]
  - BLOOD FIBRINOGEN INCREASED [None]
  - BLOOD UREA INCREASED [None]
  - PLATELET COUNT INCREASED [None]
  - PROTHROMBIN TIME PROLONGED [None]
  - WHITE BLOOD CELL COUNT INCREASED [None]
